FAERS Safety Report 10032608 (Version 2)
Quarter: 2014Q2

REPORT INFORMATION
  Report Type: Report from Study
  Country: CA (occurrence: CA)
  Receive Date: 20140324
  Receipt Date: 20140416
  Transmission Date: 20141212
  Serious: Yes (Other)
  Sender: FDA-Public Use
  Company Number: PHHY2014CA034302

PATIENT
  Sex: Female

DRUGS (26)
  1. CLOZARIL [Suspect]
     Indication: SCHIZOAFFECTIVE DISORDER
     Dosage: 150 MG BID + 600 MG HS
     Route: 048
  2. CLOZARIL [Suspect]
     Indication: POST-TRAUMATIC STRESS DISORDER
     Dosage: 100 MG BID + 600 MG HS
  3. CLOZARIL [Suspect]
     Indication: OBSESSIVE-COMPULSIVE DISORDER
  4. CLOZARIL [Suspect]
     Indication: HALLUCINATION
  5. ABILIFY [Concomitant]
     Indication: PSYCHOTIC DISORDER
     Dosage: 15 MG, BID
     Route: 048
  6. SEROQUEL [Concomitant]
     Indication: PSYCHOTIC DISORDER
     Dosage: 100 MG, AM, 350 MG SUPPER
     Route: 048
  7. SEROQUEL [Concomitant]
     Dosage: 50 MG, PRN
     Route: 048
  8. RITALIN [Concomitant]
     Dosage: 10 MG, UNK
  9. RITALIN [Concomitant]
     Dosage: 5 MG, TID
  10. PERPHENAZINE [Concomitant]
     Dosage: 30 MG, DAILY
  11. PERPHENAZINE [Concomitant]
     Dosage: 8 MG, TID
  12. ZELDOX                                  /GFR/ [Concomitant]
     Dosage: 80 MG, BID
  13. LITHIUM//LITHIUM CARBONATE [Concomitant]
     Dosage: UNK UKN, UNK
  14. ZOLOFT [Concomitant]
     Indication: DEPRESSION
     Dosage: 250 MG, QD
  15. ZOLOFT [Concomitant]
     Indication: ANXIETY
  16. CIPRALEX//ESCITALOPRAM OXALATE [Concomitant]
     Indication: SCHIZOAFFECTIVE DISORDER
     Dosage: 30 MG, QD
     Route: 048
  17. OMEPRAZOLE [Concomitant]
     Dosage: 20 MG, QD
     Route: 048
  18. LORAZEPAM [Concomitant]
     Dosage: 1 MG, PRN
     Route: 048
  19. IMOVANE [Concomitant]
     Dosage: UNK UKN, UNK
  20. SENOKOT//SENNOSIDE A+B [Concomitant]
     Dosage: 8.6 MG, QD
  21. ATROPINE [Concomitant]
     Indication: SALIVARY HYPERSECRETION
     Dosage: 1 - 2 DROPS, HS
     Route: 048
  22. ATIVAN [Concomitant]
     Dosage: 1 MG, PRN
  23. SOFLAX [Concomitant]
     Indication: SCHIZOAFFECTIVE DISORDER
     Dosage: 200 MG, BID
  24. QUETIAPIN TEVA [Concomitant]
     Dosage: 400 MG, QD
  25. QUETIAPIN TEVA [Concomitant]
     Dosage: 300 MG, UNK
     Dates: start: 20131120
  26. FLOVENT HFA [Concomitant]
     Dosage: 250 UG, 2PUFFS TWICE DAILY
     Route: 055

REACTIONS (11)
  - Melkersson-Rosenthal syndrome [Unknown]
  - Depressed mood [Unknown]
  - Malaise [Unknown]
  - Claustrophobia [Unknown]
  - Increased appetite [Unknown]
  - Apathy [Unknown]
  - Thinking abnormal [Unknown]
  - Weight abnormal [Unknown]
  - Drooling [Unknown]
  - Antipsychotic drug level decreased [Unknown]
  - Sedation [Unknown]
